FAERS Safety Report 4633955-0 (Version None)
Quarter: 2005Q2

REPORT INFORMATION
  Report Type: 
  Country: None (occurrence: None)
  Receive Date: 20050412
  Receipt Date: 20050412
  Transmission Date: 20051028
  Serious: No
  Sender: FDA-Public Use
  Company Number: None

PATIENT
  Sex: Female
  Weight: 87 kg

DRUGS (2)
  1. PACLITAXEL [Suspect]
     Dosage: 200 MG/M2 IV OVER 3 HR ON DAY 1, EVERY 21 DAYS X 6 CYCLES
     Route: 042
     Dates: start: 20021008
  2. CARBOPLATIN [Suspect]
     Dosage: AUC =6 IV OVER 15-30 MIN ON DAY 1, EVERY 21 DAYS X 6 CYCLES
     Route: 042

REACTIONS (1)
  - HAEMOPTYSIS [None]
